FAERS Safety Report 13876675 (Version 2)
Quarter: 2017Q3

REPORT INFORMATION
  Report Type: Spontaneous
  Country: BR (occurrence: BR)
  Receive Date: 20170817
  Receipt Date: 20170905
  Transmission Date: 20171127
  Serious: Yes (Hospitalization)
  Sender: FDA-Public Use
  Company Number: BR-ROCHE-1978793

PATIENT
  Sex: Female
  Weight: 63 kg

DRUGS (13)
  1. FAULDCARBO [Suspect]
     Active Substance: CARBOPLATIN
     Indication: BREAST CANCER
     Dosage: DATE OF MOST RECENT DOSE PRIOR TO HOSPITALISATION: 26/MAY/2017
     Route: 042
  2. JANUMET [Concomitant]
     Active Substance: METFORMIN HYDROCHLORIDE\SITAGLIPTIN PHOSPHATE
  3. NORIPURUM [Concomitant]
     Active Substance: IRON POLYMALTOSE
  4. RANITIDINE. [Concomitant]
     Active Substance: RANITIDINE
  5. IMOSEC [Concomitant]
     Active Substance: LOPERAMIDE
  6. HERCEPTIN [Suspect]
     Active Substance: TRASTUZUMAB
     Indication: BREAST CANCER
     Dosage: DATE OF MOST RECENT DOSE PRIOR TO HOSPITALISATION: 26/MAY/2017
     Route: 042
  7. TAXOTERE [Suspect]
     Active Substance: DOCETAXEL
     Indication: BREAST CANCER
     Route: 042
  8. CLINFAR [Concomitant]
     Active Substance: SIMVASTATIN
  9. DECADRON [Concomitant]
     Active Substance: DEXAMETHASONE
  10. BROMOPRIDE [Concomitant]
     Active Substance: BROMOPRIDE
  11. DIAMICRON [Concomitant]
     Active Substance: GLICLAZIDE
  12. ENALAPRIL [Concomitant]
     Active Substance: ENALAPRIL
  13. INDAPAMIDE. [Concomitant]
     Active Substance: INDAPAMIDE

REACTIONS (3)
  - Decreased appetite [Recovered/Resolved]
  - Dehydration [Recovered/Resolved]
  - Hyponatraemia [Recovered/Resolved]
